FAERS Safety Report 8801345 (Version 1)
Quarter: 2012Q4

REPORT INFORMATION
  Report Type: 
  Country: GB (occurrence: GB)
  Receive Date: 20120921
  Receipt Date: 20120921
  Transmission Date: 20130627
  Serious: Yes (Other)
  Sender: FDA-Public Use
  Company Number: GB-UCBSA-066296

PATIENT
  Age: 49 Year
  Sex: Male

DRUGS (4)
  1. KEPPRA [Suspect]
     Indication: CONVULSION
     Dates: start: 20120806, end: 20120904
  2. KEPPRA [Suspect]
     Indication: CONVULSION
     Dates: start: 20120702, end: 201208
  3. KEPPRA [Suspect]
     Indication: CONVULSION
     Dates: start: 20120528, end: 201207
  4. ZELBORAF [Suspect]
     Dates: start: 20120528

REACTIONS (2)
  - Neutropenia [Unknown]
  - Liver function test abnormal [Unknown]
